APPROVED DRUG PRODUCT: METHYLPHENIDATE HYDROCHLORIDE
Active Ingredient: METHYLPHENIDATE HYDROCHLORIDE
Strength: 10MG
Dosage Form/Route: CAPSULE, EXTENDED RELEASE;ORAL
Application: A203583 | Product #001 | TE Code: AB2
Applicant: SPECGX LLC
Approved: Sep 29, 2015 | RLD: No | RS: No | Type: RX